FAERS Safety Report 7611113-5 (Version None)
Quarter: 2011Q3

REPORT INFORMATION
  Report Type: 
  Country: None (occurrence: None)
  Receive Date: 20110715
  Receipt Date: 20110623
  Transmission Date: 20111222
  Serious: Yes (Death)
  Sender: FDA-Public Use
  Company Number: GB-PFIZER INC-2011155389

PATIENT
  Age: 28 Year

DRUGS (7)
  1. ACETAMINOPHEN [Suspect]
     Route: 065
  2. METHADONE HCL [Suspect]
     Route: 065
  3. TEMAZEPAM [Suspect]
     Route: 065
  4. DIAZEPAM [Suspect]
     Route: 065
  5. VENLAFAXINE HCL [Suspect]
     Route: 065
  6. CODEINE SULFATE [Suspect]
     Route: 065
  7. CLONAZEPAM [Suspect]
     Route: 065

REACTIONS (3)
  - ACCIDENTAL OVERDOSE [None]
  - TOXICITY TO VARIOUS AGENTS [None]
  - RESPIRATORY DEPRESSION [None]
